FAERS Safety Report 7100410-8 (Version None)
Quarter: 2010Q4

REPORT INFORMATION
  Report Type: 
  Country: None (occurrence: None)
  Receive Date: 20101113
  Receipt Date: 20100201
  Transmission Date: 20110411
  Serious: No
  Sender: FDA-Public Use
  Company Number: US-ALLERGAN-1001251US

PATIENT
  Sex: Female

DRUGS (3)
  1. BOTOX COSMETIC [Suspect]
     Indication: SKIN WRINKLING
     Dosage: 50 UNITS, SINGLE
     Route: 030
     Dates: start: 20100111, end: 20100111
  2. ALBUTEROL [Concomitant]
  3. HYDROCODONE [Concomitant]

REACTIONS (4)
  - ERYTHEMA [None]
  - MASS [None]
  - OCULAR HYPERAEMIA [None]
  - SWELLING FACE [None]
